FAERS Safety Report 4516763-0 (Version None)
Quarter: 2005Q1

REPORT INFORMATION
  Report Type: 
  Country: None (occurrence: None)
  Receive Date: 20041029
  Receipt Date: 20040726
  Transmission Date: 20050727
  Serious: No
  Sender: FDA-Public Use
  Company Number: 2004-118810-NL

PATIENT
  Age: 37 Year
  Sex: Female
  Weight: 77.3 kg

DRUGS (2)
  1. NUVARING [Suspect]
     Indication: CONTRACEPTION
     Dosage: DF DAILY VAGINAL
     Route: 067
     Dates: start: 20030921
  2. ALEVE [Concomitant]

REACTIONS (6)
  - HEADACHE [None]
  - METRORRHAGIA [None]
  - MOOD SWINGS [None]
  - MUSCLE SPASMS [None]
  - UNINTENDED PREGNANCY [None]
  - UTERINE CERVICAL EROSION [None]
